FAERS Safety Report 18143320 (Version 3)
Quarter: 2021Q1

REPORT INFORMATION
  Report Type: Spontaneous
  Country: US (occurrence: US)
  Receive Date: 20200813
  Receipt Date: 20210208
  Transmission Date: 20210419
  Serious: Yes (Hospitalization, Other)
  Sender: FDA-Public Use
  Company Number: US-REGENERON PHARMACEUTICALS, INC.-2020-63345

PATIENT

DRUGS (14)
  1. ESTRACE [Concomitant]
     Active Substance: ESTRADIOL
     Indication: URINARY TRACT INFECTION
     Dosage: 1 G,2X WK
  2. NOVOLOG [Concomitant]
     Active Substance: INSULIN ASPART
     Indication: DIABETES MELLITUS
     Dosage: 10?10?15 UNIT, Q MEALS
     Route: 058
  3. PRALUENT [Suspect]
     Active Substance: ALIROCUMAB
     Indication: HYPERCHOLESTEROLAEMIA
     Dosage: 150 MG, Q2W
     Route: 058
     Dates: start: 201803
  4. ZETIA [Concomitant]
     Active Substance: EZETIMIBE
     Indication: HYPERCHOLESTEROLAEMIA
     Dosage: 10 MG, QD
     Route: 065
  5. METOPROLOL TARTRATE. [Concomitant]
     Active Substance: METOPROLOL TARTRATE
     Indication: BLOOD PRESSURE ABNORMAL
     Dosage: 50 MG, AM AND PM
     Route: 065
  6. NTG [Concomitant]
     Active Substance: NITROGLYCERIN
     Indication: ANGINA PECTORIS
     Dosage: 1/50, AS NECESSARY
     Route: 065
  7. BASAGLAR [Concomitant]
     Active Substance: INSULIN GLARGINE
     Indication: DIABETES MELLITUS
     Dosage: 26 IU, AS NECESSARY
     Route: 065
  8. MURO 128 [Concomitant]
     Active Substance: SODIUM CHLORIDE
     Indication: DRY EYE
     Dosage: UNK UNK, PRN
     Route: 047
  9. PROBIOTIC                          /06395501/ [Concomitant]
     Active Substance: BIFIDOBACTERIUM ANIMALIS LACTIS
     Indication: PROPHYLAXIS
     Dosage: 1 CAP, AM
     Route: 065
  10. VIT D [Concomitant]
     Active Substance: VITAMIN D NOS
     Indication: VITAMIN D DECREASED
     Dosage: 1000 MG, AM
     Route: 065
  11. APAP [Concomitant]
     Active Substance: ACETAMINOPHEN
     Indication: PAIN
     Dosage: 650 MG, 4?6 HRS PRN
     Route: 065
  12. KETOTIFEN [Concomitant]
     Active Substance: KETOTIFEN
     Indication: ANTIALLERGIC THERAPY
     Dosage: 1 MG, 1?2 DAILY
     Route: 065
  13. MAGNESIUM OXIDE. [Concomitant]
     Active Substance: MAGNESIUM OXIDE
     Indication: HYPOMAGNESAEMIA
     Dosage: 500 MG, PM
     Route: 065
  14. PLAVIX [Concomitant]
     Active Substance: CLOPIDOGREL BISULFATE
     Indication: CORONARY ARTERY DISEASE
     Dosage: 75 MG, IN THE MORNING
     Route: 065

REACTIONS (7)
  - Atrial fibrillation [Unknown]
  - Pyelonephritis [Unknown]
  - Sepsis [Recovered/Resolved]
  - Nephrolithiasis [Unknown]
  - Device use issue [Unknown]
  - Stent placement [Unknown]
  - Hip fracture [Recovered/Resolved]

NARRATIVE: CASE EVENT DATE: 2018
